FAERS Safety Report 20150408 (Version 1)
Quarter: 2021Q4

REPORT INFORMATION
  Report Type: Spontaneous
  Country: US (occurrence: None)
  Receive Date: 20211203
  Receipt Date: 20211203
  Transmission Date: 20220303
  Serious: No
  Sender: FDA-Public Use
  Company Number: None

PATIENT
  Age: 29 Year
  Sex: Female
  Weight: 74.84 kg

DRUGS (1)
  1. CANNABIDIOL\.DELTA.8-TETRAHYDROCANNABINOL [Suspect]
     Active Substance: CANNABIDIOL\.DELTA.8-TETRAHYDROCANNABINOL
     Indication: Substance use
     Dosage: FREQUENCY : DAILY;?
     Route: 048
     Dates: start: 20211125, end: 20211125

REACTIONS (12)
  - Vomiting [None]
  - Mental disorder [None]
  - Euphoric mood [None]
  - Feeling abnormal [None]
  - Panic disorder [None]
  - Fear [None]
  - Retching [None]
  - Anxiety [None]
  - Dissociation [None]
  - Depersonalisation/derealisation disorder [None]
  - Emotional disorder [None]
  - Decreased appetite [None]

NARRATIVE: CASE EVENT DATE: 20211125
